FAERS Safety Report 10085928 (Version 2)
Quarter: 2014Q2

REPORT INFORMATION
  Report Type: Spontaneous
  Country: US (occurrence: US)
  Receive Date: 20140418
  Receipt Date: 20140515
  Transmission Date: 20141212
  Serious: No
  Sender: FDA-Public Use
  Company Number: US-BAYER-2014-056478

PATIENT
  Age: 82 Year
  Sex: Male
  Weight: 86 kg

DRUGS (4)
  1. BAYER EXTRA STRENGTH BACK + BODY PAIN [Suspect]
     Indication: BACK PAIN
     Dosage: 2 DF, BID
     Route: 048
     Dates: start: 201212
  2. ALEVE GELCAPS [Suspect]
     Indication: BACK PAIN
     Dosage: 2 DF, BID
     Route: 048
     Dates: start: 201402
  3. ADVIL [Suspect]
  4. ACID REDUCER [Concomitant]

REACTIONS (4)
  - Drug ineffective [None]
  - Drug effect incomplete [None]
  - Incorrect drug administration duration [None]
  - Extra dose administered [None]
